FAERS Safety Report 11580090 (Version 1)
Quarter: 2015Q3

REPORT INFORMATION
  Report Type: Report from Study
  Country: US (occurrence: US)
  Receive Date: 20150930
  Receipt Date: 20150930
  Transmission Date: 20151125
  Serious: No
  Sender: FDA-Public Use
  Company Number: PHEH2015US019199

PATIENT
  Sex: Male

DRUGS (4)
  1. AFINITOR [Suspect]
     Active Substance: EVEROLIMUS
     Dosage: 0.75 ML, QOD (WEEKS: 5 TO 6 0.1875MG)
     Route: 058
  2. AFINITOR [Suspect]
     Active Substance: EVEROLIMUS
     Dosage: 1 ML, QOD (WEEKS: 7+0.25 MG)
     Route: 058
  3. AFINITOR [Suspect]
     Active Substance: EVEROLIMUS
     Indication: MULTIPLE SCLEROSIS
     Dosage: 0.25 ML, UNK (WEEKS 1 TO 2: 0.60625MG) (EVERY OTHER DAY)
     Route: 058
     Dates: start: 20150922
  4. AFINITOR [Suspect]
     Active Substance: EVEROLIMUS
     Dosage: 0.5 ML, QOD (WEEKS 3 TO 4 0.125 MG)
     Route: 058

REACTIONS (3)
  - Electric shock [Unknown]
  - Musculoskeletal discomfort [Recovered/Resolved]
  - Headache [Unknown]
